FAERS Safety Report 9658965 (Version 1)
Quarter: 2013Q4

REPORT INFORMATION
  Report Type: Spontaneous
  Country: GB (occurrence: GB)
  Receive Date: 20131031
  Receipt Date: 20131031
  Transmission Date: 20140711
  Serious: Yes (Life-Threatening)
  Sender: FDA-Public Use
  Company Number: GB-AMGEN-GBRSP2013076532

PATIENT
  Age: 87 Year
  Sex: Male

DRUGS (4)
  1. ENBREL [Suspect]
     Indication: PRODUCT USED FOR UNKNOWN INDICATION
     Dosage: 50 MG, WEEKLY
     Route: 058
     Dates: start: 20120901, end: 20130901
  2. RAMIPRIL [Concomitant]
     Dosage: UNK UNK, UNK
  3. CO-CODAMOL [Concomitant]
     Dosage: UNK UNK, UNK
  4. CITALOPRAM [Concomitant]
     Dosage: UNK UNK, UNK

REACTIONS (1)
  - Rectal cancer [Not Recovered/Not Resolved]
